FAERS Safety Report 4848247-4 (Version None)
Quarter: 2005Q4

REPORT INFORMATION
  Report Type: 
  Country: None (occurrence: None)
  Receive Date: 20051208
  Receipt Date: 20051130
  Transmission Date: 20060501
  Serious: Yes (Other)
  Sender: FDA-Public Use
  Company Number: JP-JNJFOC-20051004886

PATIENT
  Age: 29 Year
  Sex: Female

DRUGS (3)
  1. RISPERDAL [Suspect]
     Indication: SCHIZOPHRENIA
     Route: 048
  2. FLUNITRAZEPAM [Concomitant]
     Route: 048
  3. CLONAZEPAM [Concomitant]
     Route: 048

REACTIONS (1)
  - LUPUS-LIKE SYNDROME [None]
